FAERS Safety Report 10444195 (Version 4)
Quarter: 2015Q2

REPORT INFORMATION
  Report Type: Spontaneous
  Country: US (occurrence: US)
  Receive Date: 20140910
  Receipt Date: 20150401
  Transmission Date: 20150821
  Serious: Yes (Hospitalization, Other)
  Sender: FDA-Public Use
  Company Number: US-009507513-1409USA004476

PATIENT
  Sex: Male
  Weight: 108.84 kg

DRUGS (1)
  1. JANUVIA [Suspect]
     Active Substance: SITAGLIPTIN PHOSPHATE
     Indication: TYPE 1 DIABETES MELLITUS
     Dosage: 100 MG, QD
     Route: 048
     Dates: start: 20121210, end: 20130726

REACTIONS (27)
  - Pancreatitis chronic [Not Recovered/Not Resolved]
  - Splenectomy [Unknown]
  - Prostatomegaly [Unknown]
  - Pancreatectomy [Unknown]
  - Atelectasis [Unknown]
  - Adenocarcinoma pancreas [Unknown]
  - Gastrectomy [Unknown]
  - Hypertension [Unknown]
  - Product use issue [Unknown]
  - Intervertebral disc degeneration [Unknown]
  - Pleural effusion [Unknown]
  - Back pain [Unknown]
  - Bladder dilatation [Unknown]
  - Normal pressure hydrocephalus [Unknown]
  - Pyelocaliectasis [Unknown]
  - Device malfunction [Unknown]
  - Hepaticojejunostomy [Unknown]
  - Lymphadenectomy [Unknown]
  - Ventriculo-peritoneal shunt [Unknown]
  - Acute kidney injury [Recovered/Resolved]
  - Myolipoma [Unknown]
  - Arteriosclerosis coronary artery [Unknown]
  - Renal cyst [Unknown]
  - Ascites [Recovering/Resolving]
  - Depression [Unknown]
  - Arteriosclerosis [Unknown]
  - Constipation [Unknown]

NARRATIVE: CASE EVENT DATE: 20121210
